FAERS Safety Report 7992628-7 (Version None)
Quarter: 2011Q4

REPORT INFORMATION
  Report Type: 
  Country: None (occurrence: None)
  Receive Date: 20111219
  Receipt Date: 20101117
  Transmission Date: 20120403
  Serious: No
  Sender: FDA-Public Use
  Company Number: US-ASTRAZENECA-2010SE54831

PATIENT
  Sex: Female

DRUGS (1)
  1. CRESTOR [Suspect]
     Route: 048
     Dates: start: 20100927, end: 20101006

REACTIONS (4)
  - MOVEMENT DISORDER [None]
  - MYALGIA [None]
  - FEELING ABNORMAL [None]
  - PAIN [None]
